FAERS Safety Report 9354772 (Version 7)
Quarter: 2018Q3

REPORT INFORMATION
  Report Type: Report from Study
  Country: DE (occurrence: DE)
  Receive Date: 20130619
  Receipt Date: 20180815
  Transmission Date: 20181010
  Serious: Yes (Life-Threatening, Hospitalization)
  Sender: FDA-Public Use
  Company Number: DE-ROCHE-1222365

PATIENT
  Age: 50 Year
  Sex: Male
  Weight: 58 kg

DRUGS (5)
  1. BEVACIZUMAB. [Suspect]
     Active Substance: BEVACIZUMAB
     Indication: COLORECTAL CANCER
     Dosage: LAST DOSE PRIOR TO SAE:03/FEB2013
     Route: 042
     Dates: start: 20130102, end: 20130206
  2. 5?FLUOROURACIL [Concomitant]
     Active Substance: FLUOROURACIL
     Indication: COLORECTAL CANCER
     Route: 042
     Dates: start: 20130102, end: 20130214
  3. CATAPRESAN [Concomitant]
     Active Substance: CLONIDINE
     Route: 065
     Dates: start: 201212
  4. FOLINIC ACID [Concomitant]
     Active Substance: LEUCOVORIN
     Indication: COLORECTAL CANCER
     Route: 065
     Dates: start: 20130102, end: 20130213
  5. IRINOTECAN [Concomitant]
     Active Substance: IRINOTECAN
     Indication: COLORECTAL CANCER
     Route: 065
     Dates: start: 20130102, end: 20130213

REACTIONS (6)
  - Hypovolaemic shock [Recovered/Resolved]
  - Ileus [Unknown]
  - Abscess [Recovered/Resolved with Sequelae]
  - Arterial rupture [Recovered/Resolved]
  - Jaundice [Recovered/Resolved]
  - Arterial rupture [Recovered/Resolved]

NARRATIVE: CASE EVENT DATE: 20130214
